FAERS Safety Report 7366142-6 (Version None)
Quarter: 2011Q1

REPORT INFORMATION
  Report Type: 
  Country: None (occurrence: None)
  Receive Date: 20110322
  Receipt Date: 20110307
  Transmission Date: 20110831
  Serious: Yes (Hospitalization)
  Sender: FDA-Public Use
  Company Number: GB-SANOFI-AVENTIS-2011SA014238

PATIENT

DRUGS (2)
  1. MULTAQ [Suspect]
     Route: 048
  2. BETA BLOCKING AGENTS [Concomitant]

REACTIONS (2)
  - SINUS ARREST [None]
  - ATRIAL FLUTTER [None]
